FAERS Safety Report 20858110 (Version 1)
Quarter: 2022Q2

REPORT INFORMATION
  Report Type: Spontaneous
  Country: CA (occurrence: CA)
  Receive Date: 20220521
  Receipt Date: 20220521
  Transmission Date: 20220721
  Serious: Yes (Hospitalization)
  Sender: FDA-Public Use
  Company Number: None

PATIENT
  Age: 57 Year
  Sex: Female
  Weight: 84 kg

DRUGS (2)
  1. CISPLATIN [Suspect]
     Active Substance: CISPLATIN
     Indication: Product used for unknown indication
     Dosage: 1 EVERY 3 WEEKS, SOLUTION, BP SINGLE DOSE VIALS 10 MG/10 ML, 50 MG/50 ML AND 100 MG/100 ML
     Route: 042
  2. ETOPOSIDE [Suspect]
     Active Substance: ETOPOSIDE
     Indication: Product used for unknown indication
     Dosage: 1 EVERY 3 WEEKS, LIQUID
     Route: 042

REACTIONS (3)
  - Chills [Unknown]
  - Neutropenia [Unknown]
  - Pyrexia [Unknown]
